FAERS Safety Report 5449600-0 (Version None)
Quarter: 2007Q3

REPORT INFORMATION
  Report Type: 
  Country: None (occurrence: None)
  Receive Date: 20070910
  Receipt Date: 20070830
  Transmission Date: 20080115
  Serious: No
  Sender: FDA-Public Use
  Company Number: TUK2007A00091

PATIENT
  Age: 68 Year
  Sex: Male

DRUGS (6)
  1. ACTOS [Suspect]
     Indication: TYPE 2 DIABETES MELLITUS
     Dosage: 45 MG ORAL
     Route: 048
     Dates: start: 20070530, end: 20070601
  2. AMLODIPINE [Concomitant]
  3. ATENOLOL [Concomitant]
  4. EZETIMIBE [Concomitant]
  5. GLIMEPIRIDE [Concomitant]
  6. RAMIPRIL [Concomitant]

REACTIONS (3)
  - ARTHRALGIA [None]
  - LETHARGY [None]
  - NAUSEA [None]
